FAERS Safety Report 10400269 (Version 1)
Quarter: 2014Q1

REPORT INFORMATION
  Report Type: Spontaneous
  Country: US (occurrence: None)
  Receive Date: 20130815
  Receipt Date: 20130815
  Transmission Date: 20141002
  Serious: Yes (Other)
  Sender: FDA-Public Use
  Company Number: ADR-2013-00620

PATIENT
  Age: 50 Year
  Sex: Male

DRUGS (2)
  1. LIORESAL INTRATHECAL (BACLOFEN INJECTION) [Suspect]
     Indication: MUSCLE SPASTICITY
     Dosage: 184.78MCG/DAY
  2. LIORESAL INTRATHECAL (BACLOFEN INJECTION) [Suspect]
     Indication: MULTIPLE SCLEROSIS
     Dosage: 184.78MCG/DAY

REACTIONS (3)
  - Muscular weakness [None]
  - Gait disturbance [None]
  - Musculoskeletal stiffness [None]
